FAERS Safety Report 5257258-9 (Version None)
Quarter: 2007Q1

REPORT INFORMATION
  Report Type: 
  Country: None (occurrence: None)
  Receive Date: 20070302
  Receipt Date: 20070221
  Transmission Date: 20070707
  Serious: Yes (Other)
  Sender: FDA-Public Use
  Company Number: 2007SP003040

PATIENT
  Age: 45 Year
  Sex: Male

DRUGS (2)
  1. PEG-INTRON [Suspect]
     Indication: HEPATITIS C
     Dosage: SC
     Route: 058
     Dates: start: 20070128
  2. REBETOL [Suspect]
     Indication: HEPATITIS C
     Dosage: PO
     Route: 048
     Dates: start: 20070128

REACTIONS (15)
  - ABDOMINAL PAIN [None]
  - ABNORMAL FAECES [None]
  - ARTHRALGIA [None]
  - ASTHENIA [None]
  - DRUG INEFFECTIVE [None]
  - DYSGEUSIA [None]
  - FAECES DISCOLOURED [None]
  - HAEMATOCHEZIA [None]
  - HAEMORRHAGE [None]
  - HYPOACUSIS [None]
  - INJECTION SITE ERYTHEMA [None]
  - INJECTION SITE IRRITATION [None]
  - KIDNEY INFECTION [None]
  - PAROSMIA [None]
  - VISUAL ACUITY REDUCED [None]
